FAERS Safety Report 16719221 (Version 1)
Quarter: 2019Q3

REPORT INFORMATION
  Report Type: Spontaneous
  Country: TR (occurrence: TR)
  Receive Date: 20190820
  Receipt Date: 20190820
  Transmission Date: 20191005
  Serious: Yes (Life-Threatening, Hospitalization, Other)
  Sender: FDA-Public Use
  Company Number: TR-DENTSPLY-2019SCDP000442

PATIENT
  Age: 31 Year
  Sex: Female

DRUGS (2)
  1. ARTICAINE [Suspect]
     Active Substance: ARTICAINE
     Indication: DENTAL LOCAL ANAESTHESIA
     Dosage: UNK
  2. LIDOCAINE. [Suspect]
     Active Substance: LIDOCAINE
     Indication: DENTAL LOCAL ANAESTHESIA
     Dosage: UNK

REACTIONS (6)
  - Sensory loss [Recovered/Resolved]
  - Kounis syndrome [Recovered/Resolved]
  - Anaphylactic reaction [Recovered/Resolved]
  - Stridor [Recovered/Resolved]
  - Respiratory arrest [Recovered/Resolved]
  - Myocardial infarction [Recovered/Resolved]
